FAERS Safety Report 12289350 (Version 1)
Quarter: 2016Q2

REPORT INFORMATION
  Report Type: Spontaneous
  Country: None (occurrence: None)
  Receive Date: 20160420
  Receipt Date: 20160420
  Transmission Date: 20160815
  Serious: Yes (Disabling)
  Sender: FDA-Public Use
  Company Number: None

PATIENT
  Age: 78 Year
  Sex: Male

DRUGS (3)
  1. METOPROLOL. [Concomitant]
     Active Substance: METOPROLOL
  2. DIAZEPAM. [Concomitant]
     Active Substance: DIAZEPAM
  3. ONDANSETRON, 4 MG [Suspect]
     Active Substance: ONDANSETRON
     Indication: NAUSEA
     Route: 048
     Dates: start: 20160418, end: 20160418

REACTIONS (1)
  - Dysuria [None]

NARRATIVE: CASE EVENT DATE: 20160418
